FAERS Safety Report 9157021 (Version 2)
Quarter: 2013Q1

REPORT INFORMATION
  Report Type: Spontaneous
  Country: GB (occurrence: None)
  Receive Date: 20130212
  Receipt Date: 20130215
  Transmission Date: 20140127
  Serious: Yes (Other)
  Sender: FDA-Public Use
  Company Number: AUR-APL-2013-01269

PATIENT
  Age: 53 Year
  Sex: Female

DRUGS (3)
  1. TERBINAFINE [Suspect]
     Indication: ONYCHOMYCOSIS
     Route: 048
     Dates: start: 20120808, end: 20120826
  2. CALCIUM AND VITAMIN D (CALCIUM D3 /01483701/) [Concomitant]
  3. MIGRALEVE PINK (MIGRALEVE /01325801/) [Concomitant]

REACTIONS (4)
  - Malaise [None]
  - Rash generalised [None]
  - Blood test abnormal [None]
  - Liver function test abnormal [None]
